FAERS Safety Report 18460308 (Version 1)
Quarter: 2020Q4

REPORT INFORMATION
  Report Type: Spontaneous
  Country: CN (occurrence: CN)
  Receive Date: 20201103
  Receipt Date: 20201103
  Transmission Date: 20210114
  Serious: Yes (Hospitalization, Other)
  Sender: FDA-Public Use
  Company Number: CN-BAXTER-2020BAX022024

PATIENT
  Age: 11 Year
  Sex: Female
  Weight: 34 kg

DRUGS (11)
  1. HOLOXAN [Suspect]
     Active Substance: IFOSFAMIDE
     Indication: EWING^S SARCOMA
     Dosage: PRIOR AE REGIMEN
     Route: 065
  2. DOXORUBICIN HYDROCHLORIDE LIPOSOMAL [Suspect]
     Active Substance: DOXORUBICIN HYDROCHLORIDE
     Dosage: VAC REGIMEN, DOXORUBICIN HYDROCHLORIDE LIPOSOME 20 MG + GS 250 ML
     Route: 041
     Dates: start: 20201004, end: 20201006
  3. VINDESINE SULFATE [Suspect]
     Active Substance: VINDESINE SULFATE
     Indication: PRODUCT USED FOR UNKNOWN INDICATION
     Dosage: PRIOR AE REGIMEN
     Route: 065
  4. DOXORUBICIN HYDROCHLORIDE LIPOSOMAL [Suspect]
     Active Substance: DOXORUBICIN HYDROCHLORIDE
     Indication: EWING^S SARCOMA
     Dosage: PRIOR AE REGIMEN
     Route: 041
  5. 0.9% SODIUM CHLORIDE INJECTION [Suspect]
     Active Substance: SODIUM CHLORIDE
     Indication: MEDICATION DILUTION
     Dosage: VAC REGIMEN, ENDOXAN 0.65 G + NS 500 ML
     Route: 041
     Dates: start: 20201004, end: 20201005
  6. VINCRISTINE SULFATE. [Suspect]
     Active Substance: VINCRISTINE SULFATE
     Indication: EWING^S SARCOMA
     Dosage: VAC REGIMEN, VINCRISTINE SULFATE 2 MG + NS 100 ML
     Route: 041
     Dates: start: 20201004, end: 20201004
  7. ENDOXAN [Suspect]
     Active Substance: CYCLOPHOSPHAMIDE
     Indication: EWING^S SARCOMA
     Dosage: PRIOR AE REGIMEN
     Route: 041
  8. ENDOXAN [Suspect]
     Active Substance: CYCLOPHOSPHAMIDE
     Dosage: VAC REGIMEN, ENDOXAN 0.65 G + NS 500ML
     Route: 041
     Dates: start: 20201004, end: 20201005
  9. 0.9% SODIUM CHLORIDE INJECTION [Suspect]
     Active Substance: SODIUM CHLORIDE
     Dosage: VAC REGIMEN, VINCRISTINE SULFATE 2 MG + NS 100 ML
     Route: 041
     Dates: start: 20201004, end: 20201004
  10. 5% GLUCOSE  INJECTION [Suspect]
     Active Substance: DEXTROSE
     Indication: MEDICATION DILUTION
     Dosage: VAC REGIMEN, DOXORUBICIN HYDROCHLORIDE LIPOSOME 20 MG + GS 250 ML
     Route: 041
     Dates: start: 20201004, end: 20201006
  11. ETOPOSIDE. [Suspect]
     Active Substance: ETOPOSIDE
     Indication: PRODUCT USED FOR UNKNOWN INDICATION
     Dosage: PRIOR AE REGIMEN
     Route: 065

REACTIONS (2)
  - Myelosuppression [Recovered/Resolved]
  - Myelosuppression [Recovering/Resolving]

NARRATIVE: CASE EVENT DATE: 20201012
